FAERS Safety Report 7552058-9 (Version None)
Quarter: 2011Q2

REPORT INFORMATION
  Report Type: 
  Country: None (occurrence: None)
  Receive Date: 20110609
  Receipt Date: 20110525
  Transmission Date: 20111010
  Serious: Yes (Hospitalization)
  Sender: FDA-Public Use
  Company Number: AUR-APL-2010-01774

PATIENT
  Age: 63 Year
  Sex: Female

DRUGS (2)
  1. MELOXICAM [Suspect]
     Indication: OSTEOARTHRITIS
     Dosage: 15MG-DAILY-ORAL
     Route: 048
     Dates: start: 20081203
  2. PREGABALIN [Concomitant]

REACTIONS (5)
  - ANGINA PECTORIS [None]
  - CHRONIC OBSTRUCTIVE PULMONARY DISEASE [None]
  - ARTERIOSCLEROSIS CORONARY ARTERY [None]
  - CORONARY ARTERY OCCLUSION [None]
  - ARRHYTHMIA SUPRAVENTRICULAR [None]
